FAERS Safety Report 15891801 (Version 1)
Quarter: 2019Q1

REPORT INFORMATION
  Report Type: Spontaneous
  Country: CH (occurrence: CH)
  Receive Date: 20190130
  Receipt Date: 20190130
  Transmission Date: 20190417
  Serious: Yes (Other)
  Sender: FDA-Public Use
  Company Number: CH-009507513-1901CHE009192

PATIENT
  Age: 32 Year
  Sex: Female

DRUGS (1)
  1. TRIDERM [Suspect]
     Active Substance: TRIAMCINOLONE ACETONIDE
     Indication: VULVOVAGINAL DISCOMFORT
     Dosage: 1 DOSAGE FORM
     Dates: start: 20180308, end: 20180310

REACTIONS (2)
  - Exposure during pregnancy [Recovered/Resolved]
  - Abortion spontaneous [Recovered/Resolved]

NARRATIVE: CASE EVENT DATE: 201803
